FAERS Safety Report 8366505-6 (Version None)
Quarter: 2012Q1

REPORT INFORMATION
  Report Type: 
  Country: None (occurrence: None)
  Receive Date: 20120323
  Receipt Date: 20110407
  Transmission Date: 20120608
  Serious: Yes (Other)
  Sender: FDA-Public Use
  Company Number: 163-21880-11041121

PATIENT
  Age: 79 Year
  Sex: Male

DRUGS (1)
  1. REVLIMID [Suspect]
     Indication: MULTIPLE MYELOMA
     Dosage: 10 MGT, DAILY FOR 21` DAYS, PO
     Route: 048
     Dates: start: 20110103

REACTIONS (2)
  - DECREASED APPETITE [None]
  - NAUSEA [None]
